FAERS Safety Report 8182161-4 (Version None)
Quarter: 2012Q1

REPORT INFORMATION
  Report Type: 
  Country: None (occurrence: None)
  Receive Date: 20120302
  Receipt Date: 20120220
  Transmission Date: 20120608
  Serious: Yes (Other)
  Sender: FDA-Public Use
  Company Number: US-ELI_LILLY_AND_COMPANY-US200805001644

PATIENT
  Age: 68 Year
  Sex: Male

DRUGS (18)
  1. CYMBALTA [Interacting]
     Dosage: 60 MG, DAILY (1/D)
  2. BENAZEPRIL HYDROCHLORIDE [Concomitant]
     Dosage: 10 MG, EACH EVENING
  3. WARFARIN SODIUM [Concomitant]
     Dosage: 3 MG, 3/W
  4. TAMSULOSIN HCL [Concomitant]
     Dosage: 0.4 MG, DAILY (1/D)
  5. COLCHICINE [Concomitant]
     Dosage: 0.6 MG, DAILY (1/D)
  6. IRON [Concomitant]
     Dosage: 325 MG, DAILY (1/D)
  7. HUMULIN N [Concomitant]
     Dosage: 40 U, DAILY (1/D)
  8. CYMBALTA [Suspect]
     Indication: DIABETIC NEUROPATHY
     Dosage: 30 MG, DAILY (1/D)
  9. CARVEDILOL [Concomitant]
     Dosage: 9.75 MG, 2/D
  10. WARFARIN SODIUM [Concomitant]
     Dosage: 4 MG, 4/W
  11. MILRINONE [Concomitant]
     Dosage: 1 D/F, UNK
     Route: 042
  12. BUMETANIDE [Concomitant]
     Dosage: 2 MG, 2/D
  13. METOLAZONE [Concomitant]
     Dosage: 1.25 MG, AS NEEDED
  14. PREDNISONE TAB [Concomitant]
     Dosage: 10 MG, DAILY (1/D)
  15. BENAZEPRIL HYDROCHLORIDE [Concomitant]
     Dosage: 20 MG, DAILY (1/D)
  16. ATORVASTATIN CALCIUM [Concomitant]
     Dosage: 20 MG, DAILY (1/D)
  17. ASPIRIN [Concomitant]
     Dosage: 81 MG, DAILY (1/D)
  18. ACETAMINOPHEN AND HYDROCODONE BITARTRATE [Concomitant]
     Indication: PAIN
     Dosage: 1 D/F, AS NEEDED

REACTIONS (5)
  - TACHYCARDIA [None]
  - WEIGHT INCREASED [None]
  - DYSPNOEA [None]
  - CARDIAC FAILURE [None]
  - DRUG INTERACTION [None]
